FAERS Safety Report 8484062-0 (Version None)
Quarter: 2012Q3

REPORT INFORMATION
  Report Type: 
  Country: None (occurrence: None)
  Receive Date: 20120703
  Receipt Date: 20120620
  Transmission Date: 20120928
  Serious: Yes (Hospitalization)
  Sender: FDA-Public Use
  Company Number: US-CELGENEUS-163-21880-12062899

PATIENT
  Sex: Male

DRUGS (20)
  1. BENADRYL [Concomitant]
     Dosage: 12.5 MILLIGRAM
     Route: 050
  2. REVLIMID [Suspect]
     Dosage: UNKNOWN
     Route: 048
     Dates: start: 20120101, end: 20120614
  3. PLATELETS [Concomitant]
     Route: 065
     Dates: start: 20120101
  4. ENALAPRIL MALEATE [Concomitant]
     Dosage: 10 MILLIGRAM
     Route: 048
  5. PRAVASTATIN [Concomitant]
     Dosage: 20 MILLIGRAM
     Route: 048
  6. AZACITIDINE [Suspect]
     Dosage: 164 MILLIGRAM
     Route: 041
     Dates: start: 20120608, end: 20120615
  7. PAXIL [Concomitant]
     Dosage: 20 MILLIGRAM
     Route: 048
  8. ACETAMINOPHEN [Concomitant]
     Dosage: 650 MILLIGRAM
     Route: 048
  9. NORCO [Concomitant]
     Dosage: 1 TABLET
     Route: 048
  10. SENNA-MINT WAF [Concomitant]
     Route: 065
  11. METFORMIN HCL [Concomitant]
     Dosage: 250 MILLIGRAM
     Route: 048
  12. METOPROLOL SUCCINATE EXTENDED RELEASE [Concomitant]
     Indication: HEART RATE
     Dosage: 25 MILLIGRAM
     Dates: start: 20120601
  13. RED BLOOD CELLS [Concomitant]
     Dosage: 2 UNITS
     Route: 065
     Dates: start: 20120101
  14. MS CONTIN [Concomitant]
     Dosage: 100 MILLIGRAM
     Route: 048
  15. ZOFRAN [Concomitant]
     Dosage: 1 TABLET
     Route: 048
  16. LEVOTHYROXINE SODIUM [Concomitant]
     Dosage: 50 MICROGRAM
     Route: 065
  17. VICODIN [Concomitant]
     Indication: PAIN
     Route: 065
  18. REVLIMID [Suspect]
     Dosage: 50 MILLIGRAM
     Route: 048
     Dates: start: 20120616
  19. COMPAZINE [Concomitant]
     Route: 065
  20. SYNTHROID [Concomitant]
     Dosage: 50 MICROGRAM
     Route: 048

REACTIONS (1)
  - ATRIAL FLUTTER [None]
